FAERS Safety Report 20301667 (Version 1)
Quarter: 2022Q1

REPORT INFORMATION
  Report Type: Spontaneous
  Country: CN (occurrence: CN)
  Receive Date: 20220105
  Receipt Date: 20220105
  Transmission Date: 20220423
  Serious: Yes (Hospitalization, Other)
  Sender: FDA-Public Use
  Company Number: CN-009507513-2201CHN000144

PATIENT
  Age: 71 Year
  Sex: Male
  Weight: 60 kg

DRUGS (1)
  1. KEYTRUDA [Suspect]
     Active Substance: PEMBROLIZUMAB
     Indication: Immunomodulatory therapy
     Dosage: 100 MG, EVERY 21 DAYS
     Route: 041
     Dates: start: 20210902, end: 20211124

REACTIONS (3)
  - Multiple organ dysfunction syndrome [Recovering/Resolving]
  - Cytokine storm [Recovering/Resolving]
  - Underdose [Unknown]

NARRATIVE: CASE EVENT DATE: 20210902
